FAERS Safety Report 9912701 (Version 1)
Quarter: 2014Q1

REPORT INFORMATION
  Report Type: Spontaneous
  Country: US (occurrence: None)
  Receive Date: 20140218
  Receipt Date: 20140218
  Transmission Date: 20141002
  Serious: Yes (Other)
  Sender: FDA-Public Use
  Company Number: None

PATIENT
  Age: 61 Year
  Sex: Male
  Weight: 90.72 kg

DRUGS (2)
  1. PROPECIA [Suspect]
     Indication: PROPHYLAXIS
     Dosage: 1MG  TAKEN BY MOUTH
  2. PROPECIA [Suspect]
     Indication: ALOPECIA
     Dosage: 1MG  TAKEN BY MOUTH

REACTIONS (2)
  - Peyronie^s disease [None]
  - Sexual dysfunction [None]
